FAERS Safety Report 15806427 (Version 1)
Quarter: 2019Q1

REPORT INFORMATION
  Report Type: Spontaneous
  Country: US (occurrence: US)
  Receive Date: 20190110
  Receipt Date: 20190110
  Transmission Date: 20190417
  Serious: Yes (Other)
  Sender: FDA-Public Use
  Company Number: US-TORRENT-00007421

PATIENT
  Sex: Female

DRUGS (2)
  1. GLYPEZIDE [Concomitant]
     Indication: DIABETES MELLITUS
     Dosage: 1 MG 2 PILLS IN THE MORNING AND TWO IN THE NIGHT
  2. LOSARTAN. [Suspect]
     Active Substance: LOSARTAN
     Indication: HYPERTENSION
     Dosage: STARTED TAKING 25MG AND THEN 50 MG AND 100 MG PER DAY OVER LAST YEAR
     Route: 048
     Dates: start: 2016

REACTIONS (1)
  - Uterine cancer [Unknown]

NARRATIVE: CASE EVENT DATE: 20180730
